FAERS Safety Report 15542137 (Version 1)
Quarter: 2018Q4

REPORT INFORMATION
  Report Type: Report from Study
  Country: ZA (occurrence: ZA)
  Receive Date: 20181023
  Receipt Date: 20181023
  Transmission Date: 20190205
  Serious: Yes (Death)
  Sender: FDA-Public Use
  Company Number: PHHY2013ZA143868

PATIENT
  Sex: Male

DRUGS (3)
  1. TASIGNA [Suspect]
     Active Substance: NILOTINIB
     Indication: CHRONIC MYELOID LEUKAEMIA
     Dosage: 400 MG, UNK
     Route: 048
  2. TASIGNA [Suspect]
     Active Substance: NILOTINIB
     Dosage: 600 MG, UNK
     Route: 048
  3. TASIGNA [Suspect]
     Active Substance: NILOTINIB
     Dosage: 400 MG, BID
     Route: 048

REACTIONS (8)
  - Hyperviscosity syndrome [Fatal]
  - Malignant neoplasm progression [Fatal]
  - Cardiac arrest [Fatal]
  - Therapeutic response decreased [Unknown]
  - Confusional state [Fatal]
  - Depressed level of consciousness [Fatal]
  - Chronic myeloid leukaemia [Fatal]
  - Slow response to stimuli [Fatal]
